FAERS Safety Report 8214480-7 (Version None)
Quarter: 2012Q1

REPORT INFORMATION
  Report Type: 
  Country: None (occurrence: None)
  Receive Date: 20120316
  Receipt Date: 20120316
  Transmission Date: 20120608
  Serious: Yes (Other)
  Sender: FDA-Public Use
  Company Number: None

PATIENT
  Sex: Female

DRUGS (1)
  1. LEVOTHYROXINE SODIUM [Suspect]
     Indication: ECONOMIC PROBLEM
     Dosage: 1 TABLET
     Route: 048
     Dates: start: 20111228, end: 20120312

REACTIONS (4)
  - NERVOUSNESS [None]
  - NAUSEA [None]
  - AGITATION [None]
  - PALPITATIONS [None]
